FAERS Safety Report 11881349 (Version 2)
Quarter: 2016Q1

REPORT INFORMATION
  Report Type: Spontaneous
  Country: JP (occurrence: JP)
  Receive Date: 20151231
  Receipt Date: 20160218
  Transmission Date: 20160526
  Serious: Yes (Hospitalization, Disabling, Other)
  Sender: FDA-Public Use
  Company Number: JP-009507513-1512JPN013136

PATIENT
  Age: 58 Year
  Sex: Female

DRUGS (11)
  1. EURODIN (ESTAZOLAM) [Concomitant]
     Indication: INSOMNIA
     Dosage: 1 MG, QD
     Route: 048
     Dates: end: 20140717
  2. DISTIGMINE BROMIDE [Concomitant]
     Active Substance: DISTIGMINE BROMIDE
     Dosage: 5 MG, QD (DIVIDED DOSE FREQUENCY UNKNOWN)
     Route: 048
  3. ETHYL LOFLAZEPATE [Suspect]
     Active Substance: ETHYL LOFLAZEPATE
     Dosage: 2 MG, QD (DIVIDED DOSE FREQUENCY UNKNOWN)
     Route: 048
  4. ALPRAZOLAM. [Suspect]
     Active Substance: ALPRAZOLAM
     Dosage: 0.8 MG, QD (DIVIDED DOSE FREQUENCY UNKNOWN)
     Route: 048
  5. PAXIL [Suspect]
     Active Substance: PAROXETINE HYDROCHLORIDE
     Indication: DEPRESSION
     Dosage: 20 MG, QD
     Route: 048
     Dates: end: 20140616
  6. ALPRAZOLAM. [Suspect]
     Active Substance: ALPRAZOLAM
     Dosage: 2.4 MG, QD (DIVIDED DOSE FREQUENCY UNKNOWN)
     Route: 048
  7. LEXOTAN [Concomitant]
     Active Substance: BROMAZEPAM
     Indication: ANXIOLYTIC THERAPY
     Dosage: 12 MG, QD
     Route: 048
     Dates: end: 20140710
  8. REMERON [Suspect]
     Active Substance: MIRTAZAPINE
     Indication: DEPRESSION
     Dosage: 15 MG, QD (DIVIDED DOSE FREQUENCY UNKNOWN)
     Route: 048
     Dates: end: 20140703
  9. ALPRAZOLAM. [Suspect]
     Active Substance: ALPRAZOLAM
     Dosage: 1.6 MG, QD (DIVIDED DOSE FREQUENCY UNKNOWN)
     Route: 048
  10. ETHYL LOFLAZEPATE [Suspect]
     Active Substance: ETHYL LOFLAZEPATE
     Dosage: 1 MG, QD (DIVIDED DOSE FREQUENCY UNKNOWN)
     Route: 048
  11. SILECE [Concomitant]
     Active Substance: FLUNITRAZEPAM
     Indication: INSOMNIA
     Dosage: 2 MG, QD (DIVIDED DOSE FREQUENCY UNKNOWN)
     Route: 048
     Dates: end: 20140721

REACTIONS (4)
  - Cognitive disorder [Recovering/Resolving]
  - Hypomania [Recovered/Resolved]
  - Obsessive thoughts [Recovered/Resolved]
  - Dyskinesia [Recovered/Resolved]

NARRATIVE: CASE EVENT DATE: 20140717
